FAERS Safety Report 7032046-1 (Version None)
Quarter: 2010Q4

REPORT INFORMATION
  Report Type: 
  Country: None (occurrence: None)
  Receive Date: 20101007
  Receipt Date: 20100924
  Transmission Date: 20110411
  Serious: Yes (Other)
  Sender: FDA-Public Use
  Company Number: US-ELI_LILLY_AND_COMPANY-US201007003198

PATIENT
  Sex: Female
  Weight: 69.841 kg

DRUGS (4)
  1. FORTEO [Suspect]
     Indication: OSTEOPOROSIS
     Dosage: 20 UG, DAILY (1/D)
     Route: 065
     Dates: start: 20100429
  2. PREDNISONE [Concomitant]
     Indication: AUTOIMMUNE DISORDER
  3. NORVASC [Concomitant]
  4. LISINOPRIL [Concomitant]

REACTIONS (3)
  - BLOOD CALCIUM INCREASED [None]
  - HEPATIC ENZYME INCREASED [None]
  - NEPHROLITHIASIS [None]
